FAERS Safety Report 21158670 (Version 2)
Quarter: 2022Q3

REPORT INFORMATION
  Report Type: Spontaneous
  Country: US (occurrence: US)
  Receive Date: 20220802
  Receipt Date: 20220813
  Transmission Date: 20221027
  Serious: No
  Sender: FDA-Public Use
  Company Number: US-ELI_LILLY_AND_COMPANY-US202207001812

PATIENT
  Sex: Female

DRUGS (2)
  1. VERZENIO [Suspect]
     Active Substance: ABEMACICLIB
     Indication: Breast cancer female
     Dosage: 200 MG, BID
     Route: 048
     Dates: start: 20211203
  2. VERZENIO [Suspect]
     Active Substance: ABEMACICLIB
     Dosage: 200 MG, BID
     Route: 048

REACTIONS (5)
  - Dry skin [Unknown]
  - Skin discolouration [Unknown]
  - Lacrimation increased [Unknown]
  - Diarrhoea [Unknown]
  - Alopecia [Unknown]
